FAERS Safety Report 25362328 (Version 1)
Quarter: 2025Q2

REPORT INFORMATION
  Report Type: Report from Study
  Country: US (occurrence: US)
  Receive Date: 20250527
  Receipt Date: 20250527
  Transmission Date: 20250717
  Serious: Yes (Other)
  Sender: NOVARTIS
  Company Number: US-002147023-NVSC2024US021342

PATIENT
  Age: 16 Year
  Sex: Male

DRUGS (3)
  1. ILARIS [Suspect]
     Active Substance: CANAKINUMAB
     Indication: Juvenile idiopathic arthritis
     Route: 058
     Dates: start: 20191022
  2. ILARIS [Suspect]
     Active Substance: CANAKINUMAB
     Dosage: 300 MG, QMO
     Route: 058
     Dates: start: 201910
  3. ILARIS [Suspect]
     Active Substance: CANAKINUMAB
     Route: 058

REACTIONS (5)
  - Atypical pneumonia [Recovered/Resolved]
  - Secretion discharge [Recovered/Resolved]
  - Pulmonary congestion [Recovered/Resolved]
  - Illness [Unknown]
  - Pyrexia [Unknown]

NARRATIVE: CASE EVENT DATE: 20240123
